FAERS Safety Report 4741737-4 (Version None)
Quarter: 2005Q3

REPORT INFORMATION
  Report Type: 
  Country: None (occurrence: None)
  Receive Date: 20050804
  Receipt Date: 20050419
  Transmission Date: 20060218
  Serious: No
  Sender: FDA-Public Use
  Company Number: WAES 0504USA03511

PATIENT
  Age: 34 Year
  Sex: Male

DRUGS (7)
  1. EMEND [Suspect]
     Indication: CHEMOTHERAPY
     Dosage: SEE IMAGE
     Route: 048
  2. EMEND [Suspect]
     Indication: NAUSEA
     Dosage: SEE IMAGE
     Route: 048
  3. EMEND [Suspect]
     Indication: CHEMOTHERAPY
     Dosage: SEE IMAGE
     Route: 048
  4. EMEND [Suspect]
     Indication: NAUSEA
     Dosage: SEE IMAGE
     Route: 048
  5. CARBOPLATIN [Concomitant]
  6. CORTICOSTEROIDS (UNSPECIFIED) [Concomitant]
  7. ETOPOSIDE [Concomitant]

REACTIONS (2)
  - DRUG INEFFECTIVE [None]
  - NAUSEA [None]
